FAERS Safety Report 7772681-6 (Version None)
Quarter: 2011Q3

REPORT INFORMATION
  Report Type: 
  Country: None (occurrence: None)
  Receive Date: 20110922
  Receipt Date: 20100115
  Transmission Date: 20111222
  Serious: No
  Sender: FDA-Public Use
  Company Number: US-ASTRAZENECA-2009SE19618

PATIENT
  Age: 622 Month
  Sex: Female
  Weight: 78 kg

DRUGS (17)
  1. CLONAZEPHAM [Concomitant]
  2. LEXAPRO [Concomitant]
     Dates: start: 20070101
  3. BUPROPION HCL [Concomitant]
     Dates: start: 20060101
  4. ABILIFY [Concomitant]
     Dates: start: 20060101
  5. LAMOTRIGINE [Concomitant]
  6. NAVANE [Concomitant]
     Dates: start: 19940101
  7. RISPERDAL [Concomitant]
     Dates: start: 19960101
  8. CARBATROL [Concomitant]
  9. ZYRTEC [Concomitant]
     Dates: start: 20070101
  10. SEROQUEL [Suspect]
     Indication: BIPOLAR DISORDER
     Dosage: VARIOUS DOSES
     Route: 048
     Dates: start: 20000101
  11. CLOZAPINE [Concomitant]
     Dates: start: 19990101
  12. ZYPREXA [Concomitant]
     Dates: start: 19980101, end: 19990101
  13. GEODON [Concomitant]
     Dates: start: 19980101
  14. HALDOL [Concomitant]
     Dates: start: 19960101
  15. PRISTIQ [Concomitant]
  16. SEROQUEL [Suspect]
     Route: 048
     Dates: start: 20061122
  17. CYMBALTRA [Concomitant]

REACTIONS (2)
  - TYPE 2 DIABETES MELLITUS [None]
  - OBESITY [None]
